FAERS Safety Report 21042026 (Version 3)
Quarter: 2022Q3

REPORT INFORMATION
  Report Type: Spontaneous
  Country: MX (occurrence: MX)
  Receive Date: 20220705
  Receipt Date: 20220820
  Transmission Date: 20221026
  Serious: Yes (Other)
  Sender: FDA-Public Use
  Company Number: MX-MLMSERVICE-2022062336320061

PATIENT
  Age: 29 Year
  Sex: Female
  Weight: 48 kg

DRUGS (3)
  1. CISPLATIN [Suspect]
     Active Substance: CISPLATIN
     Indication: Ovarian germ cell tumour
     Dosage: STRENGTH:1 MG/ML. CISPLATIN 10 MG/M2:15 MG/DAY ON DAY 1 (26-MAR-2019),
     Dates: start: 20190326, end: 20190330
  2. ETOPOSIDE [Suspect]
     Active Substance: ETOPOSIDE
     Indication: Ovarian germ cell tumour
     Dosage: STRENGTH:20 MG/ML. ETOPOSIDE 35 MG/ M2:50 MG ON DAY 1-5 (26-MAR-2019 TO 30-MAR-2019)
     Dates: start: 20190326, end: 20190330
  3. CISPLATIN [Suspect]
     Active Substance: CISPLATIN
     Indication: Ovarian germ cell tumour
     Dosage: DAY 3 (28-MAR-2019) AND DAY 5 (30-MAR-2019)
     Dates: start: 20190326, end: 20190330

REACTIONS (3)
  - Stomatitis [Recovered/Resolved]
  - Anaemia [Recovering/Resolving]
  - Haematotoxicity [Recovering/Resolving]

NARRATIVE: CASE EVENT DATE: 20190101
